FAERS Safety Report 8800972 (Version 1)
Quarter: 2012Q4

REPORT INFORMATION
  Report Type: 
  Country: NL (occurrence: NL)
  Receive Date: 20120920
  Receipt Date: 20120920
  Transmission Date: 20130627
  Serious: Yes (Other)
  Sender: FDA-Public Use
  Company Number: NL-MYLANLABS-2012S1018955

PATIENT
  Sex: Female

DRUGS (7)
  1. NITROFURANTOIN [Suspect]
     Indication: CYSTITIS
     Dosage: 50mg
     Route: 065
  2. ACENOCOUMAROL [Interacting]
     Dosage: according to INR
     Route: 065
  3. FENTANYL [Concomitant]
     Route: 065
  4. BISOPROLOL [Concomitant]
     Route: 065
  5. BUMETANIDE [Concomitant]
     Route: 065
  6. PERINDOPRIL [Concomitant]
     Route: 065
  7. NITROGLYCERIN [Concomitant]
     Route: 065

REACTIONS (5)
  - Vascular purpura [Recovered/Resolved]
  - Vasculitis [Recovered/Resolved]
  - Haematoma [Recovered/Resolved]
  - International normalised ratio increased [Recovered/Resolved]
  - Drug interaction [Recovered/Resolved]
